FAERS Safety Report 15346259 (Version 3)
Quarter: 2018Q4

REPORT INFORMATION
  Report Type: Report from Study
  Country: IL (occurrence: IL)
  Receive Date: 20180904
  Receipt Date: 20181002
  Transmission Date: 20190204
  Serious: Yes (Death, Hospitalization, Other)
  Sender: FDA-Public Use
  Company Number: IL-AMGEN-ISRSL2018093961

PATIENT
  Age: 57 Year
  Sex: Female
  Weight: 75.6 kg

DRUGS (7)
  1. NPLATE [Suspect]
     Active Substance: ROMIPLOSTIM
     Dosage: 160 MCG, QWK
     Route: 065
  2. ASPIRIN. [Concomitant]
     Active Substance: ASPIRIN
     Indication: MYOCARDIAL INFARCTION
     Dosage: UNK
  3. NPLATE [Suspect]
     Active Substance: ROMIPLOSTIM
     Dosage: 2 MCG/KG, UNK
     Route: 065
     Dates: start: 2018
  4. EFFIENT [Concomitant]
     Active Substance: PRASUGREL HYDROCHLORIDE
     Indication: MYOCARDIAL INFARCTION
     Dosage: 10 MG, QD
  5. NPLATE [Suspect]
     Active Substance: ROMIPLOSTIM
     Indication: IMMUNE THROMBOCYTOPENIC PURPURA
     Dosage: 80 MCG, QWK
     Route: 065
     Dates: start: 20160920
  6. NPLATE [Suspect]
     Active Substance: ROMIPLOSTIM
     Dosage: 600 MCG, ONE TIME DOSE
     Route: 065
  7. NPLATE [Suspect]
     Active Substance: ROMIPLOSTIM
     Dosage: 600 MCG, UNK
     Route: 065
     Dates: start: 20180917

REACTIONS (27)
  - Urinary tract inflammation [Not Recovered/Not Resolved]
  - Haemoglobin decreased [Unknown]
  - Organ failure [Fatal]
  - Intracranial venous sinus thrombosis [Recovering/Resolving]
  - Pseudomonal sepsis [Unknown]
  - Haemolysis [Recovering/Resolving]
  - Pneumonia [Recovered/Resolved]
  - Cholelithiasis [Unknown]
  - Infected bite [Unknown]
  - Drug ineffective [Unknown]
  - Immune system disorder [Unknown]
  - Bile duct stone [Recovering/Resolving]
  - Platelet count abnormal [Unknown]
  - White blood cell count decreased [Unknown]
  - Pneumonia klebsiella [Unknown]
  - Acute respiratory distress syndrome [Unknown]
  - Gastrointestinal polyp [Unknown]
  - Thrombocytosis [Unknown]
  - Phlebitis [Unknown]
  - Autoimmune pancytopenia [Unknown]
  - Pulmonary embolism [Recovering/Resolving]
  - Bacteriuria [Unknown]
  - Eye infection [Recovered/Resolved]
  - Cerebral infarction [Unknown]
  - Feeling abnormal [Recovered/Resolved]
  - Enterococcal infection [Unknown]
  - Respiratory tract inflammation [Unknown]

NARRATIVE: CASE EVENT DATE: 201702
